FAERS Safety Report 23702639 (Version 2)
Quarter: 2024Q2

REPORT INFORMATION
  Report Type: Spontaneous
  Country: GB (occurrence: GB)
  Receive Date: 20240403
  Receipt Date: 20240415
  Transmission Date: 20240715
  Serious: Yes (Other)
  Sender: FDA-Public Use
  Company Number: None

PATIENT
  Age: 10 Year
  Sex: Male
  Weight: 20 kg

DRUGS (16)
  1. MONTELUKAST [Suspect]
     Active Substance: MONTELUKAST SODIUM
     Indication: Asthma
     Dosage: 4 MILLIGRAM, QD (DAILY)
     Route: 065
     Dates: start: 201910, end: 202102
  2. MONTELUKAST [Suspect]
     Active Substance: MONTELUKAST SODIUM
     Dosage: 5 MILLIGRAM, QD (DAILY)
     Route: 065
     Dates: start: 202102, end: 202206
  3. MONTELUKAST [Suspect]
     Active Substance: MONTELUKAST SODIUM
     Indication: Asthma
     Dosage: 4 MILLIGRAM, QD (DAILY)
     Route: 065
     Dates: start: 201507, end: 201604
  4. SERETIDE [Concomitant]
     Active Substance: FLUTICASONE PROPIONATE\SALMETEROL XINAFOATE
     Indication: Asthma
     Dosage: UNK
     Route: 065
     Dates: start: 201704, end: 201710
  5. SERETIDE [Concomitant]
     Active Substance: FLUTICASONE PROPIONATE\SALMETEROL XINAFOATE
     Dosage: UNK
     Route: 065
     Dates: start: 201908
  6. BECLOMETHASONE DIPROPIONATE [Concomitant]
     Active Substance: BECLOMETHASONE DIPROPIONATE
     Indication: Asthma
     Dosage: UNK
     Route: 065
     Dates: start: 201608, end: 201704
  7. BECLOMETHASONE DIPROPIONATE [Concomitant]
     Active Substance: BECLOMETHASONE DIPROPIONATE
     Dosage: UNK
     Route: 065
     Dates: start: 201710, end: 201908
  8. AMOXICILLIN\CLAVULANATE POTASSIUM [Concomitant]
     Active Substance: AMOXICILLIN\CLAVULANATE POTASSIUM
     Indication: Asthma
     Dosage: UNK (USUALLY FOR 2 WEEKS)
     Route: 065
  9. AZITHROMYCIN [Concomitant]
     Active Substance: AZITHROMYCIN
     Indication: Asthma
     Dosage: 1 DOSAGE FORM, 3XW
     Route: 065
     Dates: start: 201608, end: 201705
  10. AZITHROMYCIN [Concomitant]
     Active Substance: AZITHROMYCIN
     Dosage: 1 DOSAGE FORM, 3XW
     Route: 065
     Dates: start: 201709, end: 201805
  11. AZITHROMYCIN [Concomitant]
     Active Substance: AZITHROMYCIN
     Dosage: 1 DOSAGE FORM, 3XW
     Route: 065
     Dates: start: 201809, end: 201905
  12. ERYTHROMYCIN [Concomitant]
     Active Substance: ERYTHROMYCIN
     Indication: Asthma
     Dosage: UNK (USUALLY FOR 2 WEEKS)
     Route: 065
  13. AMOXICILLIN [Concomitant]
     Active Substance: AMOXICILLIN
     Indication: Asthma
     Dosage: UNK
     Route: 065
  14. PREDNISOLONE [Concomitant]
     Active Substance: PREDNISOLONE
     Indication: Asthma
     Dosage: 5 MILLIGRAM (COURSE BTW 2 AND 5 DAYS, SEVERAL COURSES OVER LIFETIME DUE TO SEVERE ASTHMA FLARE UPS)
     Route: 065
  15. ALBUTEROL [Concomitant]
     Active Substance: ALBUTEROL
     Indication: Asthma
     Dosage: UNK (AS REQUIRED)
     Route: 065
  16. CLARITHROMYCIN [Concomitant]
     Active Substance: CLARITHROMYCIN
     Indication: Asthma
     Dosage: UNK (USUALLY FOR 2 WEEKS)
     Route: 065

REACTIONS (19)
  - Growth failure [Not Recovered/Not Resolved]
  - Self-destructive behaviour [Unknown]
  - Suicidal ideation [Unknown]
  - Short stature [Not Recovered/Not Resolved]
  - Medication error [Unknown]
  - Head banging [Unknown]
  - Anger [Unknown]
  - Retching [Not Recovered/Not Resolved]
  - Decreased appetite [Not Recovered/Not Resolved]
  - Food aversion [Unknown]
  - Fear [Not Recovered/Not Resolved]
  - Panic attack [Unknown]
  - Dermatillomania [Unknown]
  - Tic [Unknown]
  - Malabsorption [Unknown]
  - Weight decreased [Unknown]
  - Aggression [Unknown]
  - Anxiety [Unknown]
  - Depression [Unknown]
